FAERS Safety Report 6489473-0 (Version None)
Quarter: 2009Q4

REPORT INFORMATION
  Report Type: 
  Country: None (occurrence: None)
  Receive Date: 20091210
  Receipt Date: 20091008
  Transmission Date: 20100525
  Serious: No
  Sender: FDA-Public Use
  Company Number: US-AMGEN-KDL368346

PATIENT
  Sex: Female

DRUGS (3)
  1. ENBREL [Suspect]
     Indication: RHEUMATOID ARTHRITIS
     Route: 058
     Dates: start: 20060418
  2. PLAQUENIL [Concomitant]
     Dates: start: 20000101
  3. METHOTREXATE [Concomitant]
     Dates: start: 20000101

REACTIONS (2)
  - PULMONARY CONGESTION [None]
  - SWELLING [None]
